FAERS Safety Report 6671716-1 (Version None)
Quarter: 2010Q2

REPORT INFORMATION
  Report Type: 
  Country: None (occurrence: None)
  Receive Date: 20100407
  Receipt Date: 20100401
  Transmission Date: 20101027
  Serious: Yes (Death)
  Sender: FDA-Public Use
  Company Number: PHHY2009JP07066

PATIENT
  Sex: Female

DRUGS (3)
  1. DIOVAN [Suspect]
     Indication: HYPERTENSION
     Dosage: UNK
     Route: 048
     Dates: start: 20081006, end: 20081101
  2. CONIEL [Concomitant]
     Indication: HYPERTENSION
     Dosage: UNK
     Dates: start: 20080115, end: 20081101
  3. THYRADIN S [Concomitant]
     Dosage: UNK
     Route: 048
     Dates: start: 20080115, end: 20081101

REACTIONS (1)
  - ROAD TRAFFIC ACCIDENT [None]
